FAERS Safety Report 24658829 (Version 1)
Quarter: 2024Q4

REPORT INFORMATION
  Report Type: Spontaneous
  Country: PK (occurrence: PK)
  Receive Date: 20241125
  Receipt Date: 20241125
  Transmission Date: 20250114
  Serious: Yes (Other)
  Sender: REGENERON
  Company Number: PK-BAYER-2024A164619

PATIENT
  Sex: Male

DRUGS (2)
  1. EYLEA [Suspect]
     Active Substance: AFLIBERCEPT
     Indication: Endophthalmitis
     Dosage: 2 MG, ONCE, SOLUTION FOR INJECTION, 40 MG/ML
     Dates: start: 20241118, end: 20241118
  2. UNSPECIFIED INGREDIENT [Concomitant]
     Active Substance: UNSPECIFIED INGREDIENT
     Indication: Diabetic retinal oedema

REACTIONS (3)
  - Blindness unilateral [Unknown]
  - Vision blurred [Not Recovered/Not Resolved]
  - Product use in unapproved indication [Unknown]
